FAERS Safety Report 14145320 (Version 1)
Quarter: 2017Q4

REPORT INFORMATION
  Report Type: Spontaneous
  Country: US (occurrence: US)
  Receive Date: 20171031
  Receipt Date: 20171031
  Transmission Date: 20180321
  Serious: Yes (Death, Other)
  Sender: FDA-Public Use
  Company Number: US-ELI_LILLY_AND_COMPANY-US201710010156

PATIENT
  Age: 71 Year
  Sex: Male

DRUGS (3)
  1. TRESIBA [Concomitant]
     Active Substance: INSULIN DEGLUDEC
     Indication: TYPE 2 DIABETES MELLITUS
     Dosage: 70 U, BID
     Route: 065
  2. HUMALOG KWIKPEN [Suspect]
     Active Substance: INSULIN LISPRO
     Indication: TYPE 2 DIABETES MELLITUS
     Dosage: 30 U, TID UP TO 100 UNITS A DAY
     Route: 065
     Dates: end: 20170919
  3. HUMULIN R U-500 [Suspect]
     Active Substance: INSULIN HUMAN
     Indication: TYPE 2 DIABETES MELLITUS
     Dosage: 70 U, TID, UP TO A TOTAL OF 250 UNITS A DAY
     Route: 065
     Dates: start: 20170920

REACTIONS (7)
  - Cellulitis [Unknown]
  - Chronic kidney disease [Unknown]
  - Fungal infection [Unknown]
  - Death [Fatal]
  - Diabetic neuropathy [Unknown]
  - Type 2 diabetes mellitus [Unknown]
  - Retinopathy [Unknown]

NARRATIVE: CASE EVENT DATE: 20170923
